FAERS Safety Report 4489980-6 (Version None)
Quarter: 2004Q4

REPORT INFORMATION
  Report Type: 
  Country: None (occurrence: None)
  Receive Date: 20041015
  Receipt Date: 20040805
  Transmission Date: 20050328
  Serious: Yes (Other)
  Sender: FDA-Public Use
  Company Number: 2004079125

PATIENT
  Sex: Male

DRUGS (1)
  1. DILANTIN-125 [Suspect]
     Indication: EPILEPSY

REACTIONS (5)
  - ARTHROPATHY [None]
  - COMA [None]
  - JOINT HYPEREXTENSION [None]
  - LOWER LIMB FRACTURE [None]
  - PATELLA FRACTURE [None]
